FAERS Safety Report 7889909-4 (Version None)
Quarter: 2011Q4

REPORT INFORMATION
  Report Type: 
  Country: None (occurrence: None)
  Receive Date: 20111103
  Receipt Date: 20111024
  Transmission Date: 20120403
  Serious: Yes (Hospitalization, Other)
  Sender: FDA-Public Use
  Company Number: KR-ELI_LILLY_AND_COMPANY-KR201110007211

PATIENT
  Age: 73 Year
  Sex: Male

DRUGS (2)
  1. HUMALOG MIX 75/25 [Suspect]
     Indication: DIABETES MELLITUS
     Dosage: 24 U, EACH MORNING
     Dates: start: 20111011
  2. HUMALOG MIX 75/25 [Suspect]
     Dosage: 14 U, EACH EVENING
     Dates: start: 20111011

REACTIONS (1)
  - LUNG NEOPLASM MALIGNANT [None]
